FAERS Safety Report 6633243-7 (Version None)
Quarter: 2010Q1

REPORT INFORMATION
  Report Type: 
  Country: None (occurrence: None)
  Receive Date: 20100312
  Receipt Date: 20100224
  Transmission Date: 20100710
  Serious: Yes (Death, Hospitalization, Other)
  Sender: FDA-Public Use
  Company Number: PHHY2010JP09505

PATIENT
  Age: 27 Year

DRUGS (6)
  1. CYCLOSPORINE [Suspect]
     Indication: UNRELATED DONOR BONE MARROW TRANSPLANTATION THERAPY
     Dosage: UNK
     Route: 048
     Dates: start: 19990601, end: 20010401
  2. CYCLOSPORINE [Suspect]
     Indication: PROPHYLAXIS AGAINST GRAFT VERSUS HOST DISEASE
  3. METHOTREXATE [Concomitant]
     Indication: UNRELATED DONOR BONE MARROW TRANSPLANTATION THERAPY
  4. METHOTREXATE [Concomitant]
     Indication: PROPHYLAXIS AGAINST GRAFT VERSUS HOST DISEASE
  5. PREDNISOLONE [Concomitant]
     Indication: STEM CELL TRANSPLANT
     Dosage: 1 MG/KG, UNK
     Dates: start: 19990601, end: 20010201
  6. PREDNISOLONE [Concomitant]
     Dosage: 15 MG/DAY

REACTIONS (8)
  - ACUTE GRAFT VERSUS HOST DISEASE [None]
  - COUGH [None]
  - DYSPNOEA [None]
  - FORCED EXPIRATORY VOLUME DECREASED [None]
  - LUNG INFECTION PSEUDOMONAL [None]
  - ORGANISING PNEUMONIA [None]
  - RENAL DISORDER [None]
  - RESPIRATORY DISORDER [None]
